FAERS Safety Report 10442395 (Version 1)
Quarter: 2014Q3

REPORT INFORMATION
  Report Type: Spontaneous
  Country: US (occurrence: None)
  Receive Date: 20140908
  Receipt Date: 20140908
  Transmission Date: 20150326
  Serious: Yes (Hospitalization, Other)
  Sender: FDA-Public Use
  Company Number: ADR-2014-01597

PATIENT
  Age: 42 Year
  Sex: Female

DRUGS (4)
  1. FENTANYL INTRATHECAL [Suspect]
     Active Substance: FENTANYL
  2. BACLOFEN INTRATHECAL [Suspect]
     Active Substance: BACLOFEN
     Indication: PAIN
  3. BUPIVACAINE [Suspect]
     Active Substance: BUPIVACAINE
  4. CLONIDINE. [Suspect]
     Active Substance: CLONIDINE

REACTIONS (2)
  - Product quality issue [None]
  - Delusion [None]
